FAERS Safety Report 9096982 (Version 1)
Quarter: 2013Q1

REPORT INFORMATION
  Report Type: Spontaneous
  Country: US (occurrence: None)
  Receive Date: 20130124
  Receipt Date: 20130124
  Transmission Date: 20140127
  Serious: Yes (Other)
  Sender: FDA-Public Use
  Company Number: 2012AP004378

PATIENT
  Age: 6 Year
  Sex: Male

DRUGS (3)
  1. CLONIDINE HYDROCHLORIDE [Suspect]
  2. ARGININE [Suspect]
     Route: 042
  3. DESMOPRESSIN [Concomitant]

REACTIONS (4)
  - Haematuria [None]
  - Hypotension [None]
  - Off label use [None]
  - Growth hormone deficiency [None]
